FAERS Safety Report 25747282 (Version 1)
Quarter: 2025Q3

REPORT INFORMATION
  Report Type: Spontaneous
  Country: US (occurrence: US)
  Receive Date: 20250901
  Receipt Date: 20250901
  Transmission Date: 20251021
  Serious: Yes (Other)
  Sender: APOTEX
  Company Number: US-APOTEX-2025AP012468

PATIENT

DRUGS (2)
  1. BUSULFAN [Suspect]
     Active Substance: BUSULFAN
     Indication: Bone marrow conditioning regimen
     Route: 065
  2. BUSULFAN [Suspect]
     Active Substance: BUSULFAN
     Dosage: QD (FOUR THERAPEUTIC DOSES ON CONSECUTIVE DAYS)
     Route: 065

REACTIONS (1)
  - Mucosal inflammation [Unknown]
